FAERS Safety Report 8925182 (Version 1)
Quarter: 2012Q4

REPORT INFORMATION
  Report Type: Spontaneous
  Country: AU (occurrence: None)
  Receive Date: 20121116
  Receipt Date: 20121116
  Transmission Date: 20130627
  Serious: Yes (Other)
  Sender: FDA-Public Use
  Company Number: B0844142A

PATIENT
  Age: 40 Year
  Sex: Male

DRUGS (7)
  1. LAMIVUDINE-HIV [Suspect]
     Indication: HIV INFECTION
     Route: 048
  2. ABACAVIR SULPHATE [Suspect]
     Route: 048
  3. EFAVIRENZ [Suspect]
  4. STAVUDINE [Suspect]
  5. DIDANOSINE [Suspect]
  6. TENOFOVIR (FORMULATION UNKNOWN) (TENOFOVIR) [Suspect]
  7. EMTRICITABINE [Suspect]

REACTIONS (7)
  - Optic neuropathy [None]
  - Peripheral sensory neuropathy [None]
  - Osteoporosis [None]
  - Glomerular filtration rate decreased [None]
  - Blood triglycerides increased [None]
  - Gamma-glutamyltransferase increased [None]
  - Mitochondrial toxicity [None]
